FAERS Safety Report 7135660-8 (Version None)
Quarter: 2010Q4

REPORT INFORMATION
  Report Type: 
  Country: None (occurrence: None)
  Receive Date: 20101203
  Receipt Date: 20101111
  Transmission Date: 20110411
  Serious: Yes (Other)
  Sender: FDA-Public Use
  Company Number: MX-ROCHE-745411

PATIENT
  Sex: Female
  Weight: 69 kg

DRUGS (2)
  1. PEGINTERFERON ALFA-2A [Suspect]
     Indication: HEPATITIS C
     Route: 058
     Dates: start: 20100601, end: 20100901
  2. RIBAVIRIN [Suspect]
     Indication: HEPATITIS C
     Route: 048
     Dates: start: 20100601, end: 20100901

REACTIONS (2)
  - HEPATIC ENCEPHALOPATHY [None]
  - THROMBOCYTOPENIA [None]
